FAERS Safety Report 10376331 (Version 1)
Quarter: 2014Q3

REPORT INFORMATION
  Report Type: Spontaneous
  Country: US (occurrence: US)
  Receive Date: 20140811
  Receipt Date: 20140811
  Transmission Date: 20150326
  Serious: No
  Sender: FDA-Public Use
  Company Number: US-PFIZER INC-2014223046

PATIENT
  Sex: Male

DRUGS (3)
  1. VIAGRA [Interacting]
     Active Substance: SILDENAFIL CITRATE
     Dosage: 300 MG (3 TABLETS OF 100MG), UNK
  2. CELEBREX [Interacting]
     Active Substance: CELECOXIB
     Dosage: UNK
  3. XANAX [Suspect]
     Active Substance: ALPRAZOLAM
     Dosage: UNK

REACTIONS (4)
  - Drug interaction [Unknown]
  - Impaired work ability [Unknown]
  - Intentional product misuse [Unknown]
  - Disturbance in social behaviour [Unknown]
